FAERS Safety Report 5253354-0 (Version None)
Quarter: 2007Q1

REPORT INFORMATION
  Report Type: 
  Country: None (occurrence: None)
  Receive Date: 20070301
  Receipt Date: 20070223
  Transmission Date: 20070707
  Serious: Yes (Death)
  Sender: FDA-Public Use
  Company Number: FR-GILEAD-2007-0011389

PATIENT
  Age: 52 Year
  Sex: Male

DRUGS (3)
  1. TRUVADA [Suspect]
     Indication: HIV INFECTION
     Dates: start: 20070101
  2. TRUVADA [Suspect]
     Dates: start: 20070101
  3. KALETRA [Suspect]
     Indication: HIV INFECTION
     Dates: start: 20070101

REACTIONS (6)
  - DRUG INTOLERANCE [None]
  - GASTROINTESTINAL DISORDER [None]
  - LACTIC ACIDOSIS [None]
  - MALAISE [None]
  - NAUSEA [None]
  - RENAL FAILURE [None]
